FAERS Safety Report 5856460-2 (Version None)
Quarter: 2008Q3

REPORT INFORMATION
  Report Type: 
  Country: None (occurrence: None)
  Receive Date: 20080825
  Receipt Date: 20080509
  Transmission Date: 20090109
  Serious: No
  Sender: FDA-Public Use
  Company Number: A0727256A

PATIENT
  Age: 78 Year
  Sex: Male

DRUGS (9)
  1. VERAMYST [Suspect]
     Dosage: 2SPR PER DAY
     Route: 045
     Dates: start: 20080201
  2. ASPIRIN [Concomitant]
  3. PLAVIX [Concomitant]
  4. NORVASC [Concomitant]
  5. CATAPRES [Concomitant]
  6. TOPROL-XL [Concomitant]
  7. NEXIUM [Concomitant]
  8. GLUCOSAMINE WITH CHONDROITIN [Concomitant]
  9. FISH OIL [Concomitant]

REACTIONS (2)
  - THERAPEUTIC RESPONSE DECREASED [None]
  - THERAPEUTIC RESPONSE UNEXPECTED [None]
